FAERS Safety Report 14997209 (Version 2)
Quarter: 2018Q3

REPORT INFORMATION
  Report Type: Spontaneous
  Country: PT (occurrence: PT)
  Receive Date: 20180611
  Receipt Date: 20180924
  Transmission Date: 20181010
  Serious: Yes (Death)
  Sender: FDA-Public Use
  Company Number: PT-BAUSCH-BL-2018-016092

PATIENT
  Age: 77 Year
  Sex: Male

DRUGS (3)
  1. DEXAMETHASONE. [Suspect]
     Active Substance: DEXAMETHASONE
     Indication: NERVOUS SYSTEM DISORDER
     Dosage: MAINTENANCE DOSE
     Route: 065
  2. DEXAMETHASONE. [Suspect]
     Active Substance: DEXAMETHASONE
     Dosage: WEANED
     Route: 065
  3. DEXAMETHASONE. [Suspect]
     Active Substance: DEXAMETHASONE
     Indication: OEDEMA
     Dosage: STARTED ON DAY 17
     Route: 065

REACTIONS (1)
  - Drug ineffective [Recovered/Resolved]
